FAERS Safety Report 13909445 (Version 1)
Quarter: 2017Q3

REPORT INFORMATION
  Report Type: Spontaneous
  Country: GB (occurrence: GB)
  Receive Date: 20170828
  Receipt Date: 20170828
  Transmission Date: 20171127
  Serious: Yes (Disabling, Other)
  Sender: FDA-Public Use
  Company Number: GB-AUROBINDO-AUR-APL-2017-39195

PATIENT
  Age: 34 Year
  Sex: Female
  Weight: 73.47 kg

DRUGS (2)
  1. VENLAFAXINE [Suspect]
     Active Substance: VENLAFAXINE HYDROCHLORIDE
     Indication: DEPRESSION
     Dosage: 225 MG, UNK
     Route: 065
     Dates: start: 2008, end: 201707
  2. VENLAFAXINE [Suspect]
     Active Substance: VENLAFAXINE HYDROCHLORIDE
     Dosage: 18 MG, UNK

REACTIONS (3)
  - Depression suicidal [Unknown]
  - Hypomania [Recovering/Resolving]
  - Abortion spontaneous [Unknown]
